FAERS Safety Report 11330859 (Version 1)
Quarter: 2015Q3

REPORT INFORMATION
  Report Type: Spontaneous
  Country: US (occurrence: None)
  Receive Date: 20150730
  Receipt Date: 20150730
  Transmission Date: 20151125
  Serious: No
  Sender: FDA-Public Use
  Company Number: None

PATIENT
  Age: 55 Year
  Sex: Female
  Weight: 97.07 kg

DRUGS (6)
  1. ASA [Concomitant]
     Active Substance: ASPIRIN
  2. ATORVASTATIN 20 MG [Suspect]
     Active Substance: ATORVASTATIN
     Route: 048
  3. SYNTHROID [Concomitant]
     Active Substance: LEVOTHYROXINE SODIUM
  4. VIT. D [Concomitant]
  5. DIOVAN [Concomitant]
     Active Substance: VALSARTAN
  6. VITAMIN C [Concomitant]
     Active Substance: ASCORBIC ACID

REACTIONS (4)
  - Headache [None]
  - Pain [None]
  - Middle insomnia [None]
  - Myalgia [None]

NARRATIVE: CASE EVENT DATE: 20150526
